FAERS Safety Report 8288184-9 (Version None)
Quarter: 2012Q2

REPORT INFORMATION
  Report Type: 
  Country: None (occurrence: None)
  Receive Date: 20120411
  Receipt Date: 20120329
  Transmission Date: 20120825
  Serious: Yes (Death, Hospitalization, Other)
  Sender: FDA-Public Use
  Company Number: AUR-APL-2012-01724

PATIENT
  Age: 28 Year
  Sex: Male

DRUGS (5)
  1. LAMOTRIGINE [Suspect]
     Indication: PRODUCT USED FOR UNKNOWN INDICATION
  2. LIPID EMULSION (LIPID EMULSION) [Suspect]
     Indication: SHOCK
     Dosage: INTRAVENOUS BOLUS
     Route: 040
  3. LIPID EMULSION (LIPID EMULSION) [Suspect]
     Indication: TOXICITY TO VARIOUS AGENTS
     Dosage: INTRAVENOUS BOLUS
     Route: 040
  4. DULOXETINE HYDROCHLORIDE [Suspect]
     Indication: PRODUCT USED FOR UNKNOWN INDICATION
  5. VERAPAMIL [Suspect]
     Indication: PRODUCT USED FOR UNKNOWN INDICATION

REACTIONS (4)
  - TOXICITY TO VARIOUS AGENTS [None]
  - SHOCK [None]
  - CIRCULATORY COLLAPSE [None]
  - HYPERLIPIDAEMIA [None]
